FAERS Safety Report 9417086 (Version 1)
Quarter: 2013Q3

REPORT INFORMATION
  Report Type: Spontaneous
  Country: FR (occurrence: FR)
  Receive Date: 20130724
  Receipt Date: 20130724
  Transmission Date: 20140515
  Serious: Yes (Other)
  Sender: FDA-Public Use
  Company Number: FR-PFIZER INC-2013211270

PATIENT
  Age: 53 Year
  Sex: Male

DRUGS (2)
  1. FLUOROURACILE PFIZER [Suspect]
     Indication: OROPHARYNGEAL CANCER
     Dosage: 6300 MG, CYCLIC
     Route: 041
     Dates: start: 20120214, end: 20120217
  2. MORPHINE [Concomitant]
     Dosage: UNK
     Dates: end: 20120217

REACTIONS (5)
  - Anaphylactic shock [Recovered/Resolved]
  - Malaise [Recovered/Resolved]
  - Hypotension [Recovered/Resolved]
  - Bradycardia [Recovered/Resolved]
  - Bradypnoea [Recovered/Resolved]
